FAERS Safety Report 15678658 (Version 1)
Quarter: 2018Q4

REPORT INFORMATION
  Report Type: Spontaneous
  Country: US (occurrence: US)
  Receive Date: 20181130
  Receipt Date: 20181130
  Transmission Date: 20190205
  Serious: Yes (Disabling)
  Sender: FDA-Public Use
  Company Number: None

PATIENT
  Age: 70 Year
  Sex: Female
  Weight: 67.5 kg

DRUGS (4)
  1. OMEGA 3 [Concomitant]
     Active Substance: OMEGA-3 FATTY ACIDS
  2. FISHOIL [Concomitant]
  3. WELL AT WALGREENS EXTRA STRENGTH PAIN RELIEVER ACETAMINOPHEN 500 MG [Suspect]
     Active Substance: ACETAMINOPHEN
     Indication: MULTIPLE FRACTURES
     Dosage: ?          QUANTITY:1 TABLET(S);?
     Route: 048
     Dates: start: 20181128, end: 20181130
  4. VITAMIN D3 [Concomitant]
     Active Substance: CHOLECALCIFEROL

REACTIONS (3)
  - Discomfort [None]
  - Gastric disorder [None]
  - Flatulence [None]

NARRATIVE: CASE EVENT DATE: 20181128
